FAERS Safety Report 7040544-X (Version None)
Quarter: 2010Q4

REPORT INFORMATION
  Report Type: 
  Country: None (occurrence: None)
  Receive Date: 20101006
  Receipt Date: 20100920
  Transmission Date: 20110411
  Serious: Yes (Other)
  Sender: FDA-Public Use
  Company Number: 2010-00948

PATIENT
  Age: 61 Year
  Sex: Female
  Weight: 80.7403 kg

DRUGS (3)
  1. RAMIPRIL [Suspect]
     Indication: HYPERTENSION
     Dosage: 10 MG (ONCE EACH MORNING AND NIGHT(, PER ORAL; 10 MG (2 IN 1 D), PER ORAL
     Route: 048
     Dates: start: 20100715, end: 20100906
  2. RAMIPRIL [Suspect]
     Indication: HYPERTENSION
     Dosage: 10 MG (ONCE EACH MORNING AND NIGHT(, PER ORAL; 10 MG (2 IN 1 D), PER ORAL
     Route: 048
     Dates: start: 20100907
  3. VERAPAMIL [Concomitant]

REACTIONS (5)
  - BLOOD PRESSURE INCREASED [None]
  - DISEASE RECURRENCE [None]
  - DIZZINESS [None]
  - HERPES SIMPLEX [None]
  - HYPERHIDROSIS [None]
